FAERS Safety Report 11242827 (Version 1)
Quarter: 2015Q3

REPORT INFORMATION
  Report Type: Spontaneous
  Country: CN (occurrence: CN)
  Receive Date: 20150707
  Receipt Date: 20150707
  Transmission Date: 20151125
  Serious: Yes (Hospitalization)
  Sender: FDA-Public Use
  Company Number: CN-GLAXOSMITHKLINE-CN2015GSK096663

PATIENT
  Age: 60 Year
  Sex: Male
  Weight: 66 kg

DRUGS (4)
  1. XUEZHIKANG [Suspect]
     Active Substance: RED YEAST
     Indication: CORONARY ARTERY DISEASE
     Dosage: 2 UNK, BID
     Route: 048
     Dates: start: 201503
  2. HEPTODIN [Suspect]
     Active Substance: LAMIVUDINE
     Indication: HEPATITIS B
     Dosage: 100 MG, QD
     Route: 048
     Dates: start: 20121218
  3. NIFEDIPINE. [Suspect]
     Active Substance: NIFEDIPINE
     Indication: HYPERTENSION
     Dosage: 1 UNK, BID
     Route: 048
     Dates: start: 20121218
  4. ALLOPURINOL. [Suspect]
     Active Substance: ALLOPURINOL
     Indication: GOUT
     Dosage: 1 UNK, BID
     Route: 048
     Dates: start: 201505

REACTIONS (5)
  - Transaminases increased [Recovering/Resolving]
  - Suspected counterfeit product [Unknown]
  - Hepatitis B DNA increased [Unknown]
  - Weight decreased [Not Recovered/Not Resolved]
  - Drug resistance [Not Recovered/Not Resolved]

NARRATIVE: CASE EVENT DATE: 2015
